FAERS Safety Report 7649770-X (Version None)
Quarter: 2011Q3

REPORT INFORMATION
  Report Type: 
  Country: None (occurrence: None)
  Receive Date: 20110802
  Receipt Date: 20090707
  Transmission Date: 20111222
  Serious: Yes (Hospitalization)
  Sender: FDA-Public Use
  Company Number: FR-ASTRAZENECA-2009SE04398

PATIENT
  Age: 71 Year
  Sex: Male

DRUGS (4)
  1. TRILEPTAL [Concomitant]
     Indication: TEMPORAL LOBE EPILEPSY
  2. LEUPROLIDE ACETATE [Suspect]
     Indication: PROSTATE CANCER
     Dates: start: 20070101, end: 20080901
  3. ZOLADEX [Suspect]
     Indication: PROSTATE CANCER
     Route: 058
     Dates: start: 20080901
  4. KEPPRA [Concomitant]
     Indication: TEMPORAL LOBE EPILEPSY

REACTIONS (3)
  - MYOPATHY [None]
  - CEREBELLAR SYNDROME [None]
  - METABOLIC SYNDROME [None]
